FAERS Safety Report 9778258 (Version 3)
Quarter: 2014Q2

REPORT INFORMATION
  Report Type: Spontaneous
  Country: US (occurrence: US)
  Receive Date: 20131223
  Receipt Date: 20140521
  Transmission Date: 20141212
  Serious: Yes (Hospitalization, Other)
  Sender: FDA-Public Use
  Company Number: US-ELI_LILLY_AND_COMPANY-US201312005098

PATIENT
  Sex: Male
  Weight: 78.46 kg

DRUGS (10)
  1. HUMULIN 30% REGULAR, 70% NPH [Suspect]
     Indication: TYPE 2 DIABETES MELLITUS
     Dosage: 24 U, BID
     Route: 065
     Dates: end: 201312
  2. GLIPIZIDE [Concomitant]
     Indication: BLOOD GLUCOSE INCREASED
  3. METFORMIN [Concomitant]
  4. LISINOPRIL [Concomitant]
     Dosage: 40 MG, QD
  5. NORVASC [Concomitant]
     Dosage: 10 MG, QD
  6. PRILOSEC                           /00661201/ [Concomitant]
     Dosage: 20 MG, QD
  7. OXYCODONE [Concomitant]
     Dosage: UNK
     Dates: end: 201312
  8. TRAMADOL [Concomitant]
     Dosage: UNK
     Dates: start: 2003
  9. HYDROCHLOROTHIAZIDE [Concomitant]
     Dosage: 12.5 DF, QD
  10. HUMALOG MIX [Concomitant]
     Indication: TYPE 2 DIABETES MELLITUS
     Dosage: 24 U, BID
     Route: 065
     Dates: start: 201312

REACTIONS (25)
  - Brain neoplasm [Unknown]
  - Head injury [Unknown]
  - Fall [Recovered/Resolved]
  - Amnesia [Unknown]
  - Fall [Unknown]
  - Blood glucose increased [Unknown]
  - Diabetic neuropathy [Recovered/Resolved]
  - Burning sensation [Unknown]
  - Jaw disorder [Unknown]
  - Eating disorder [Unknown]
  - Fatigue [Unknown]
  - Drug dose omission [Unknown]
  - Impaired gastric emptying [Not Recovered/Not Resolved]
  - Tooth loss [Unknown]
  - Road traffic accident [Recovered/Resolved]
  - Memory impairment [Not Recovered/Not Resolved]
  - Gait disturbance [Unknown]
  - Balance disorder [Unknown]
  - Procedural pain [Unknown]
  - Dysphemia [Not Recovered/Not Resolved]
  - Speech disorder [Unknown]
  - Mood altered [Unknown]
  - Visual acuity reduced [Unknown]
  - Mental disorder [Unknown]
  - Unevaluable event [Unknown]
